FAERS Safety Report 23871749 (Version 1)
Quarter: 2024Q2

REPORT INFORMATION
  Report Type: Report from Study
  Country: CA (occurrence: CA)
  Receive Date: 20240520
  Receipt Date: 20240520
  Transmission Date: 20240716
  Serious: Yes (Other)
  Sender: FDA-Public Use
  Company Number: CA-BEH-2024172409

PATIENT
  Age: 70 Year
  Sex: Male
  Weight: 95.238 kg

DRUGS (1)
  1. HIZENTRA [Suspect]
     Active Substance: HUMAN IMMUNOGLOBULIN G
     Indication: Chronic inflammatory demyelinating polyradiculoneuropathy
     Dosage: 12 G, QW
     Route: 065
     Dates: start: 20231129

REACTIONS (1)
  - Dialysis [Unknown]
